FAERS Safety Report 9789874 (Version 1)
Quarter: 2013Q4

REPORT INFORMATION
  Report Type: Spontaneous
  Country: US (occurrence: None)
  Receive Date: 20131227
  Receipt Date: 20131227
  Transmission Date: 20140711
  Serious: Yes (Other)
  Sender: FDA-Public Use
  Company Number: 2013SA132536

PATIENT
  Sex: Female

DRUGS (1)
  1. ROLAIDS REGULAR STRENGTH MINT [Suspect]

REACTIONS (2)
  - Product physical consistency issue [None]
  - Choking [None]
